FAERS Safety Report 5388794-2 (Version None)
Quarter: 2007Q3

REPORT INFORMATION
  Report Type: 
  Country: None (occurrence: None)
  Receive Date: 20070712
  Receipt Date: 20070626
  Transmission Date: 20080115
  Serious: Yes (Other)
  Sender: FDA-Public Use
  Company Number: 07H-163-0312833-00

PATIENT

DRUGS (1)
  1. NORMAL SALINE INJECTION (SODIUM CHLORIDE INJECTION) (SODIUM CHLORIDE) [Suspect]
     Dosage: TRANSPLACENTAL
     Route: 064
     Dates: start: 20070101

REACTIONS (2)
  - DRUG EXPOSURE DURING PREGNANCY [None]
  - FOETAL HEART RATE DECELERATION [None]
